FAERS Safety Report 15389172 (Version 1)
Quarter: 2018Q3

REPORT INFORMATION
  Report Type: Report from Study
  Country: US (occurrence: US)
  Receive Date: 20180917
  Receipt Date: 20180917
  Transmission Date: 20181010
  Serious: Yes (Death, Other)
  Sender: FDA-Public Use
  Company Number: US-ROCHE-2185128

PATIENT
  Sex: Male

DRUGS (4)
  1. RITUXIMAB. [Suspect]
     Active Substance: RITUXIMAB
     Indication: B-CELL LYMPHOMA REFRACTORY
     Dosage: ON DAY 1 OF A 21?DAY CYCLE
     Route: 042
  2. PIXANTRONE [Suspect]
     Active Substance: PIXANTRONE
     Indication: B-CELL LYMPHOMA REFRACTORY
     Dosage: 55 MG/M2, 85 MG/M2, OR 115 MG/M2, DEPENDING ON THE COHORT ON DAY 1 OF A 21?DAY CYCLE
     Route: 042
  3. BENDAMUSTINE [Suspect]
     Active Substance: BENDAMUSTINE
     Indication: B-CELL LYMPHOMA REFRACTORY
     Dosage: ON DAY 1 OF A 21?DAY CYCLE
     Route: 042
  4. PEGFILGRASTIM [Concomitant]
     Active Substance: PEGFILGRASTIM
     Dosage: ADMINISTERED ON DAY 2
     Route: 065

REACTIONS (2)
  - Myelodysplastic syndrome [Unknown]
  - Acute myeloid leukaemia [Fatal]
